FAERS Safety Report 10139768 (Version 2)
Quarter: 2014Q3

REPORT INFORMATION
  Report Type: Spontaneous
  Country: US (occurrence: US)
  Receive Date: 20140429
  Receipt Date: 20140710
  Transmission Date: 20150326
  Serious: Yes (Life-Threatening, Other)
  Sender: FDA-Public Use
  Company Number: US-BAYER-2014-060682

PATIENT
  Age: 17 Year
  Sex: Female
  Weight: 91 kg

DRUGS (2)
  1. LUPRON [Concomitant]
     Active Substance: LEUPROLIDE ACETATE
  2. MIRENA [Suspect]
     Active Substance: LEVONORGESTREL
     Indication: CONTRACEPTION
     Dosage: 20 MCG/24HR, CONT
     Route: 015
     Dates: start: 20090311, end: 20100727

REACTIONS (12)
  - Infection [None]
  - Infertility [None]
  - Emotional distress [None]
  - Anhedonia [None]
  - Anxiety [None]
  - Genital haemorrhage [None]
  - Device dislocation [None]
  - Injury [None]
  - General physical health deterioration [None]
  - Depression [None]
  - Abdominal pain [None]
  - Device dislocation [None]

NARRATIVE: CASE EVENT DATE: 200904
